FAERS Safety Report 6855656-0 (Version None)
Quarter: 2010Q3

REPORT INFORMATION
  Report Type: 
  Country: None (occurrence: None)
  Receive Date: 20100719
  Receipt Date: 20090924
  Transmission Date: 20110219
  Serious: No
  Sender: FDA-Public Use
  Company Number: US-KINGPHARMUSA00001-K200901181

PATIENT
  Sex: Female
  Weight: 68.027 kg

DRUGS (6)
  1. LEVOXYL [Suspect]
     Indication: HYPOTHYROIDISM
     Dosage: 88 MCG, QD
     Route: 048
     Dates: start: 20090101, end: 20090901
  2. LEVOXYL [Suspect]
     Dosage: 75 MCG, QD
     Route: 048
     Dates: start: 20070101, end: 20090101
  3. LEVOXYL [Suspect]
     Dosage: 50 MCG, QD
     Route: 048
     Dates: start: 19990101, end: 20070101
  4. PAXIL [Concomitant]
     Indication: ANXIETY
     Dosage: UNK
  5. PAXIL [Concomitant]
     Indication: PANIC ATTACK
  6. EYE DROPS [Concomitant]

REACTIONS (1)
  - WEIGHT INCREASED [None]
